FAERS Safety Report 6078251-2 (Version None)
Quarter: 2009Q1

REPORT INFORMATION
  Report Type: 
  Country: None (occurrence: None)
  Receive Date: 20090213
  Receipt Date: 20081215
  Transmission Date: 20090719
  Serious: Yes (Hospitalization, Other)
  Sender: FDA-Public Use
  Company Number: DE-PFIZER INC-2008153906

PATIENT

DRUGS (4)
  1. EPIRUBICIN HCL [Suspect]
     Indication: BREAST CANCER
     Dosage: 90 MG/M2, EVERY 3 WEEKS
     Route: 042
     Dates: start: 20080416, end: 20080625
  2. PACLITAXEL [Suspect]
     Indication: BREAST CANCER
     Dosage: 80 MG/M2, WEEKLY
     Route: 042
     Dates: start: 20080721, end: 20080812
  3. BEVACIZUMAB [Suspect]
     Indication: BREAST CANCER
     Dosage: 15 MG/KG, EVERY 3 WEEKS
     Route: 042
     Dates: start: 20080416, end: 20080625
  4. CYCLOPHOSPHAMIDE [Suspect]
     Indication: BREAST CANCER
     Dosage: 600 MG/M2, EVERY 3 WEEKS
     Route: 042
     Dates: start: 20080416, end: 20080625

REACTIONS (7)
  - BONE MARROW FAILURE [None]
  - EMBOLISM [None]
  - GLUCOSE URINE PRESENT [None]
  - HEPATIC ENZYME INCREASED [None]
  - MUCOSAL INFLAMMATION [None]
  - PYREXIA [None]
  - SEPSIS [None]
